FAERS Safety Report 5956523-7 (Version None)
Quarter: 2008Q4

REPORT INFORMATION
  Report Type: 
  Country: None (occurrence: None)
  Receive Date: 20081118
  Receipt Date: 20081113
  Transmission Date: 20090506
  Serious: Yes (Other)
  Sender: FDA-Public Use
  Company Number: B0544706A

PATIENT
  Age: 46 Year
  Sex: Female

DRUGS (5)
  1. TYVERB [Suspect]
     Indication: BREAST CANCER METASTATIC
     Dosage: 1250MG PER DAY
     Route: 048
     Dates: start: 20081011, end: 20081110
  2. CAPECITABINE [Concomitant]
     Indication: BREAST CANCER METASTATIC
     Dosage: 6TAB PER DAY
     Route: 048
     Dates: start: 20080920
  3. ADEMETIONINE [Concomitant]
     Route: 042
  4. ESSENTIALE [Concomitant]
     Route: 042
  5. APROTININ [Concomitant]
     Route: 042

REACTIONS (8)
  - ALANINE AMINOTRANSFERASE INCREASED [None]
  - ASTHENIA [None]
  - ATELECTASIS [None]
  - DIARRHOEA [None]
  - DYSPNOEA [None]
  - HEPATIC ENZYME INCREASED [None]
  - PNEUMONIA [None]
  - RASH [None]
